FAERS Safety Report 7309365-4 (Version None)
Quarter: 2011Q1

REPORT INFORMATION
  Report Type: 
  Country: None (occurrence: None)
  Receive Date: 20110223
  Receipt Date: 20110111
  Transmission Date: 20110831
  Serious: Yes (Other)
  Sender: FDA-Public Use
  Company Number: PHEH2009US05751

PATIENT
  Sex: Female

DRUGS (33)
  1. ESTRADIOL [Suspect]
     Indication: HORMONE REPLACEMENT THERAPY
     Dosage: UNK
     Dates: start: 19870101, end: 20070101
  2. ESTRADIOL CYPIONATE [Suspect]
  3. CARISOPRODOL [Concomitant]
  4. ESTRATEST [Suspect]
     Indication: HORMONE REPLACEMENT THERAPY
     Dosage: UNK
     Dates: start: 19870101, end: 20070101
  5. PREVACID [Concomitant]
  6. ATIVAN [Concomitant]
  7. DYAZIDE [Concomitant]
  8. TRAZODONE HCL [Concomitant]
  9. COMBIPATCH [Suspect]
     Indication: MENOPAUSE
     Dosage: UNK
     Route: 062
     Dates: end: 20050501
  10. COUMADIN [Concomitant]
  11. ZOCOR [Concomitant]
  12. ESTRACE [Suspect]
  13. CLIMARA PRO [Suspect]
     Indication: HORMONE REPLACEMENT THERAPY
     Dosage: UNK
     Dates: start: 19870101, end: 20070101
  14. CARDIZEM [Concomitant]
  15. TESTIM [Suspect]
  16. INDERAL [Concomitant]
  17. OXYCODONE [Concomitant]
  18. SOMA [Concomitant]
  19. KLONOPIN [Concomitant]
  20. FENTANYL-100 [Concomitant]
  21. ASPIRIN [Concomitant]
  22. ULTRAM [Concomitant]
  23. ZOVIRAX [Concomitant]
  24. CARAFATE [Concomitant]
  25. PROMETHAZINE [Concomitant]
  26. PROVERA [Suspect]
     Indication: HORMONE REPLACEMENT THERAPY
     Dosage: UNK
     Dates: start: 19870101, end: 20040923
  27. MEDROXYPROGESTERONE [Suspect]
     Indication: HORMONE REPLACEMENT THERAPY
     Dosage: UNK
     Dates: start: 19870101, end: 20070101
  28. ACYCLOVIR [Concomitant]
  29. CARTIA                                  /USA/ [Concomitant]
  30. LOVASTATIN [Concomitant]
  31. HYDROCODONE [Concomitant]
  32. DURAGESIC-50 [Concomitant]
  33. NYSTATIN [Concomitant]

REACTIONS (45)
  - NON-HODGKIN'S LYMPHOMA [None]
  - POST POLIO SYNDROME [None]
  - LIPOMA OF BREAST [None]
  - FIBROCYSTIC BREAST DISEASE [None]
  - ANDROGEN DEFICIENCY [None]
  - BLOOD PRESSURE INCREASED [None]
  - PAIN [None]
  - NAUSEA [None]
  - BALANCE DISORDER [None]
  - INJURY [None]
  - MUSCULOSKELETAL PAIN [None]
  - TREMOR [None]
  - ANXIETY [None]
  - PRURITUS [None]
  - NODAL OSTEOARTHRITIS [None]
  - FATIGUE [None]
  - BLOOD CHOLESTEROL INCREASED [None]
  - TRANSIENT ISCHAEMIC ATTACK [None]
  - GASTROINTESTINAL HAEMORRHAGE [None]
  - WEIGHT DECREASED [None]
  - MUSCLE STRAIN [None]
  - RASH ERYTHEMATOUS [None]
  - CARDIAC DISORDER [None]
  - ENTEROCOLITIS [None]
  - PEPTIC ULCER [None]
  - HERPES VIRUS INFECTION [None]
  - SPINAL OSTEOARTHRITIS [None]
  - FIBROMYALGIA [None]
  - MIGRAINE [None]
  - MENIERE'S DISEASE [None]
  - PROCTALGIA [None]
  - REPETITIVE STRAIN INJURY [None]
  - ASTHENIA [None]
  - OESOPHAGEAL SPASM [None]
  - DEPRESSION [None]
  - ARTHRALGIA [None]
  - HEADACHE [None]
  - SICCA SYNDROME [None]
  - ENDOLYMPHATIC HYDROPS [None]
  - CEREBROVASCULAR ACCIDENT [None]
  - UPPER RESPIRATORY TRACT INFECTION [None]
  - EPSTEIN-BARR VIRAEMIA [None]
  - BREAST CANCER STAGE III [None]
  - SYNOVIAL CYST [None]
  - MYALGIA [None]
